FAERS Safety Report 12858154 (Version 1)
Quarter: 2016Q4

REPORT INFORMATION
  Report Type: Spontaneous
  Country: US (occurrence: US)
  Receive Date: 20161018
  Receipt Date: 20161018
  Transmission Date: 20170207
  Serious: Yes (Other)
  Sender: FDA-Public Use
  Company Number: US-SA-2016SA099073

PATIENT
  Sex: Male

DRUGS (1)
  1. LEMTRADA [Suspect]
     Active Substance: ALEMTUZUMAB
     Route: 042

REACTIONS (4)
  - Rash [Unknown]
  - Pyrexia [Unknown]
  - Lower respiratory tract infection [Unknown]
  - Chest discomfort [Unknown]
